FAERS Safety Report 6279015-7 (Version None)
Quarter: 2009Q3

REPORT INFORMATION
  Report Type: 
  Country: None (occurrence: None)
  Receive Date: 20090723
  Receipt Date: 20090715
  Transmission Date: 20100115
  Serious: Yes (Other)
  Sender: FDA-Public Use
  Company Number: AU-B.I. PHARMACEUTICALS,INC./RIDGEFIELD-2009-AU-00347AU

PATIENT
  Sex: Male

DRUGS (9)
  1. MOBIC [Suspect]
     Indication: ARTHRITIS
     Dosage: 15 MG
     Route: 048
     Dates: end: 20081105
  2. ASPIRIN [Suspect]
     Dosage: 100 MG
     Route: 048
     Dates: end: 20081105
  3. CLOPIDOGREL [Suspect]
     Dosage: 75 MG
     Route: 048
     Dates: start: 20030101, end: 20081105
  4. CARVEDILOL HYDROCHLORIDE [Concomitant]
  5. DOXEPIN HYDROCHLORIDE [Concomitant]
  6. GLIMEPIRIDE [Concomitant]
  7. METFORMIN HYDROCHLORIDE [Concomitant]
  8. PRAVASTATIN SODIUM [Concomitant]
  9. RAMIPRIL [Concomitant]

REACTIONS (4)
  - CIRCULATORY COLLAPSE [None]
  - DUODENAL ULCER [None]
  - FALL [None]
  - MELAENA [None]
